FAERS Safety Report 25554572 (Version 1)
Quarter: 2025Q3

REPORT INFORMATION
  Report Type: Spontaneous
  Country: EU (occurrence: EU)
  Receive Date: 20250715
  Receipt Date: 20250715
  Transmission Date: 20251020
  Serious: Yes (Other)
  Sender: MYLAN
  Company Number: EU-MYLANLABS-2025M1059075

PATIENT
  Sex: Male

DRUGS (48)
  1. EMTRICITABINE\TENOFOVIR DISOPROXIL [Suspect]
     Active Substance: EMTRICITABINE\TENOFOVIR DISOPROXIL
     Indication: HIV infection
     Dosage: UNK, BID
  2. EMTRICITABINE\TENOFOVIR DISOPROXIL [Suspect]
     Active Substance: EMTRICITABINE\TENOFOVIR DISOPROXIL
     Dosage: UNK, BID
     Route: 065
  3. EMTRICITABINE\TENOFOVIR DISOPROXIL [Suspect]
     Active Substance: EMTRICITABINE\TENOFOVIR DISOPROXIL
     Dosage: UNK, BID
     Route: 065
  4. EMTRICITABINE\TENOFOVIR DISOPROXIL [Suspect]
     Active Substance: EMTRICITABINE\TENOFOVIR DISOPROXIL
     Dosage: UNK, BID
  5. TENOFOVIR [Suspect]
     Active Substance: TENOFOVIR
     Indication: HIV infection
  6. TENOFOVIR [Suspect]
     Active Substance: TENOFOVIR
     Route: 065
  7. TENOFOVIR [Suspect]
     Active Substance: TENOFOVIR
     Route: 065
  8. TENOFOVIR [Suspect]
     Active Substance: TENOFOVIR
  9. ABACAVIR [Suspect]
     Active Substance: ABACAVIR
     Indication: HIV infection
  10. ABACAVIR [Suspect]
     Active Substance: ABACAVIR
     Route: 065
  11. ABACAVIR [Suspect]
     Active Substance: ABACAVIR
     Route: 065
  12. ABACAVIR [Suspect]
     Active Substance: ABACAVIR
  13. BICTEGRAVIR [Suspect]
     Active Substance: BICTEGRAVIR
     Indication: HIV infection
  14. BICTEGRAVIR [Suspect]
     Active Substance: BICTEGRAVIR
     Route: 065
  15. BICTEGRAVIR [Suspect]
     Active Substance: BICTEGRAVIR
     Route: 065
  16. BICTEGRAVIR [Suspect]
     Active Substance: BICTEGRAVIR
  17. COBICISTAT\DARUNAVIR ETHANOLATE [Suspect]
     Active Substance: COBICISTAT\DARUNAVIR ETHANOLATE
     Indication: HIV infection
  18. COBICISTAT\DARUNAVIR ETHANOLATE [Suspect]
     Active Substance: COBICISTAT\DARUNAVIR ETHANOLATE
     Route: 065
  19. COBICISTAT\DARUNAVIR ETHANOLATE [Suspect]
     Active Substance: COBICISTAT\DARUNAVIR ETHANOLATE
     Route: 065
  20. COBICISTAT\DARUNAVIR ETHANOLATE [Suspect]
     Active Substance: COBICISTAT\DARUNAVIR ETHANOLATE
  21. DOLUTEGRAVIR [Suspect]
     Active Substance: DOLUTEGRAVIR
     Indication: HIV infection
  22. DOLUTEGRAVIR [Suspect]
     Active Substance: DOLUTEGRAVIR
     Route: 065
  23. DOLUTEGRAVIR [Suspect]
     Active Substance: DOLUTEGRAVIR
     Route: 065
  24. DOLUTEGRAVIR [Suspect]
     Active Substance: DOLUTEGRAVIR
  25. DORAVIRINE [Suspect]
     Active Substance: DORAVIRINE
     Indication: HIV infection
  26. DORAVIRINE [Suspect]
     Active Substance: DORAVIRINE
     Route: 065
  27. DORAVIRINE [Suspect]
     Active Substance: DORAVIRINE
     Route: 065
  28. DORAVIRINE [Suspect]
     Active Substance: DORAVIRINE
  29. ELVITEGRAVIR [Suspect]
     Active Substance: ELVITEGRAVIR
     Indication: HIV infection
  30. ELVITEGRAVIR [Suspect]
     Active Substance: ELVITEGRAVIR
     Route: 065
  31. ELVITEGRAVIR [Suspect]
     Active Substance: ELVITEGRAVIR
     Route: 065
  32. ELVITEGRAVIR [Suspect]
     Active Substance: ELVITEGRAVIR
  33. LAMIVUDINE [Suspect]
     Active Substance: LAMIVUDINE
     Indication: HIV infection
  34. LAMIVUDINE [Suspect]
     Active Substance: LAMIVUDINE
     Route: 065
  35. LAMIVUDINE [Suspect]
     Active Substance: LAMIVUDINE
     Route: 065
  36. LAMIVUDINE [Suspect]
     Active Substance: LAMIVUDINE
  37. RALTEGRAVIR [Suspect]
     Active Substance: RALTEGRAVIR
     Indication: HIV infection
     Dosage: UNK, BID
  38. RALTEGRAVIR [Suspect]
     Active Substance: RALTEGRAVIR
     Dosage: UNK, BID
     Route: 065
  39. RALTEGRAVIR [Suspect]
     Active Substance: RALTEGRAVIR
     Dosage: UNK, BID
     Route: 065
  40. RALTEGRAVIR [Suspect]
     Active Substance: RALTEGRAVIR
     Dosage: UNK, BID
  41. ZIDOVUDINE [Suspect]
     Active Substance: ZIDOVUDINE
     Indication: HIV infection
  42. ZIDOVUDINE [Suspect]
     Active Substance: ZIDOVUDINE
     Route: 065
  43. ZIDOVUDINE [Suspect]
     Active Substance: ZIDOVUDINE
     Route: 065
  44. ZIDOVUDINE [Suspect]
     Active Substance: ZIDOVUDINE
  45. SULFAMETHOXAZOLE\TRIMETHOPRIM [Concomitant]
     Active Substance: SULFAMETHOXAZOLE\TRIMETHOPRIM
     Indication: Pneumocystis jirovecii infection
  46. SULFAMETHOXAZOLE\TRIMETHOPRIM [Concomitant]
     Active Substance: SULFAMETHOXAZOLE\TRIMETHOPRIM
     Route: 065
  47. SULFAMETHOXAZOLE\TRIMETHOPRIM [Concomitant]
     Active Substance: SULFAMETHOXAZOLE\TRIMETHOPRIM
     Route: 065
  48. SULFAMETHOXAZOLE\TRIMETHOPRIM [Concomitant]
     Active Substance: SULFAMETHOXAZOLE\TRIMETHOPRIM

REACTIONS (2)
  - Multiple-drug resistance [Unknown]
  - Treatment noncompliance [Unknown]
